FAERS Safety Report 16117092 (Version 1)
Quarter: 2019Q2

REPORT INFORMATION
  Report Type: Spontaneous
  Country: US (occurrence: US)
  Receive Date: 20190325
  Receipt Date: 20190325
  Transmission Date: 20190711
  Serious: No
  Sender: FDA-Public Use
  Company Number: None

PATIENT
  Age: 23 Year
  Sex: Female
  Weight: 56.25 kg

DRUGS (2)
  1. AMETHIA LO [Concomitant]
     Active Substance: ETHINYL ESTRADIOL\LEVONORGESTREL
  2. LEVONORGESTREL AND ETHINYL ESTRADIOL [Suspect]
     Active Substance: ETHINYL ESTRADIOL\LEVONORGESTREL
     Indication: CONTRACEPTION
     Dosage: ?          QUANTITY:1 TABLET(S);?
     Route: 048
     Dates: start: 20190324

REACTIONS (20)
  - Withdrawal bleed [None]
  - Decreased appetite [None]
  - Blindness [None]
  - Depressed level of consciousness [None]
  - Abdominal pain [None]
  - Fatigue [None]
  - Somnolence [None]
  - Increased appetite [None]
  - Unresponsive to stimuli [None]
  - Product substitution issue [None]
  - Mood swings [None]
  - Feeling abnormal [None]
  - Depression [None]
  - Metrorrhagia [None]
  - Dizziness [None]
  - Product availability issue [None]
  - Feeling cold [None]
  - Visual field defect [None]
  - Nausea [None]
  - Abdominal distension [None]

NARRATIVE: CASE EVENT DATE: 20190325
